FAERS Safety Report 23421745 (Version 1)
Quarter: 2024Q1

REPORT INFORMATION
  Report Type: Spontaneous
  Country: US (occurrence: US)
  Receive Date: 20240119
  Receipt Date: 20240119
  Transmission Date: 20240410
  Serious: No
  Sender: FDA-Public Use
  Company Number: US-PFIZER INC-202400016867

PATIENT
  Sex: Female

DRUGS (1)
  1. XELJANZ XR [Suspect]
     Active Substance: TOFACITINIB CITRATE
     Dosage: UNK

REACTIONS (7)
  - Insomnia [Unknown]
  - Skin fissures [Unknown]
  - Dry skin [Unknown]
  - Skin laceration [Unknown]
  - Nail discolouration [Unknown]
  - Skin papilloma [Unknown]
  - Rash [Unknown]
